FAERS Safety Report 8462962-5 (Version None)
Quarter: 2012Q2

REPORT INFORMATION
  Report Type: 
  Country: None (occurrence: None)
  Receive Date: 20120625
  Receipt Date: 20120620
  Transmission Date: 20120825
  Serious: Yes (Hospitalization)
  Sender: FDA-Public Use
  Company Number: US-GLAXOSMITHKLINE-A0967225A

PATIENT
  Age: 61 Year
  Sex: Female

DRUGS (1)
  1. FLOLAN [Suspect]
     Indication: PULMONARY ARTERIAL HYPERTENSION
     Dosage: 37.5NGKM SEE DOSAGE TEXT
     Route: 042
     Dates: start: 20100401

REACTIONS (5)
  - CARDIAC DISORDER [None]
  - PARADOXICAL EMBOLISM [None]
  - PERICARDIAL EFFUSION [None]
  - CEREBROVASCULAR ACCIDENT [None]
  - ASCITES [None]
